FAERS Safety Report 6706080-2 (Version None)
Quarter: 2010Q2

REPORT INFORMATION
  Report Type: 
  Country: None (occurrence: None)
  Receive Date: 20100503
  Receipt Date: 20100420
  Transmission Date: 20101027
  Serious: Yes (Hospitalization)
  Sender: FDA-Public Use
  Company Number: FR-SOLVAY-00210002464

PATIENT
  Age: 30839 Day
  Sex: Female

DRUGS (10)
  1. CORDARONE [Concomitant]
     Indication: DRUG USE FOR UNKNOWN INDICATION
     Dosage: DAILY DOSE:  UNKNOWN
     Route: 065
  2. PRAVASTATIN [Concomitant]
     Indication: DRUG USE FOR UNKNOWN INDICATION
     Dosage: DAILY DOSE:  UNKNOWN
     Route: 065
  3. KARDEGIC [Concomitant]
     Indication: DRUG USE FOR UNKNOWN INDICATION
     Dosage: DAILY DOSE:  UNKNOWN
     Route: 065
     Dates: end: 20100325
  4. KARDEGIC [Concomitant]
     Dosage: DAILY DOSE:  UNKNOWN
     Route: 065
     Dates: start: 20100401
  5. SPIRONOLACTONE [Suspect]
     Indication: CARDIAC FAILURE
     Dosage: DAILY DOSE: 12.5 MILLIGRAM(S)
     Route: 048
     Dates: start: 20100119, end: 20100324
  6. COVERSYL 2 MG [Suspect]
     Indication: DRUG USE FOR UNKNOWN INDICATION
     Dosage: DAILY DOSE: 2 MILLIGRAM(S)
     Route: 048
  7. LASIX [Suspect]
     Indication: DRUG USE FOR UNKNOWN INDICATION
     Dosage: DAILY DOSE:  UNKNOWN
     Route: 065
     Dates: end: 20100325
  8. LASIX [Suspect]
     Dosage: DAILY DOSE: 40 MILLIGRAM(S)
     Route: 065
     Dates: start: 20100330
  9. COUMADIN [Suspect]
     Indication: DRUG USE FOR UNKNOWN INDICATION
     Dosage: DAILY DOSE:  UNKNOWN
     Route: 065
     Dates: end: 20100322
  10. COUMADIN [Suspect]
     Dosage: DAILY DOSE:  UNKNOWN
     Route: 065
     Dates: start: 20100328

REACTIONS (7)
  - BLOOD CREATININE INCREASED [None]
  - BREAST SARCOMA [None]
  - CARDIAC FAILURE [None]
  - EPISTAXIS [None]
  - HYPERKALAEMIA [None]
  - HYPONATRAEMIA [None]
  - INTERNATIONAL NORMALISED RATIO INCREASED [None]
